FAERS Safety Report 16213202 (Version 2)
Quarter: 2020Q4

REPORT INFORMATION
  Report Type: Spontaneous
  Country: US (occurrence: US)
  Receive Date: 20190418
  Receipt Date: 20201102
  Transmission Date: 20210113
  Serious: Yes (Death, Hospitalization)
  Sender: FDA-Public Use
  Company Number: US-JNJFOC-20190409093

PATIENT
  Age: 85 Year
  Sex: Male

DRUGS (1)
  1. XARELTO [Suspect]
     Active Substance: RIVAROXABAN
     Indication: THROMBOSIS
     Route: 048
     Dates: start: 20160902, end: 201701

REACTIONS (2)
  - Gastric ulcer haemorrhage [Fatal]
  - Haemorrhagic arteriovenous malformation [Fatal]

NARRATIVE: CASE EVENT DATE: 201612
